FAERS Safety Report 8282793-9 (Version None)
Quarter: 2012Q2

REPORT INFORMATION
  Report Type: 
  Country: None (occurrence: None)
  Receive Date: 20120413
  Receipt Date: 20120409
  Transmission Date: 20120825
  Serious: Yes (Other)
  Sender: FDA-Public Use
  Company Number: US-SP-2012-03807

PATIENT
  Sex: Female

DRUGS (2)
  1. IMMUNOGLOBULIN HUMAN ANTIRABIES [Suspect]
     Indication: IMMUNISATION
     Route: 065
     Dates: start: 20120331, end: 20120331
  2. IMOVAX RABIES I.D. [Suspect]
     Indication: IMMUNISATION
     Route: 065
     Dates: start: 20120407, end: 20120407

REACTIONS (2)
  - HYPOTONIA [None]
  - SKIN EXFOLIATION [None]
